FAERS Safety Report 23819303 (Version 1)
Quarter: 2024Q2

REPORT INFORMATION
  Report Type: Spontaneous
  Country: US (occurrence: US)
  Receive Date: 20240506
  Receipt Date: 20240506
  Transmission Date: 20240716
  Serious: Yes (Hospitalization, Other)
  Sender: FDA-Public Use
  Company Number: US-CADILA HEALTHCARE LIMITED-US-ZYDUS-106341

PATIENT

DRUGS (1)
  1. AMANTADINE [Suspect]
     Active Substance: AMANTADINE
     Indication: Tardive dyskinesia
     Dosage: UNK
     Route: 065

REACTIONS (2)
  - Parkinsonism hyperpyrexia syndrome [Recovering/Resolving]
  - Treatment noncompliance [Unknown]
